FAERS Safety Report 9593852 (Version 1)
Quarter: 2013Q4

REPORT INFORMATION
  Report Type: Spontaneous
  Country: IT (occurrence: IT)
  Receive Date: 20131004
  Receipt Date: 20131004
  Transmission Date: 20140711
  Serious: Yes (Other)
  Sender: FDA-Public Use
  Company Number: IT-TEVA-434296ISR

PATIENT
  Age: 66 Year
  Sex: Female
  Weight: 67 kg

DRUGS (7)
  1. FLUOROURACILE TEVA [Suspect]
     Indication: RECTAL CANCER
     Dosage: 700 MG, CYCLICAL
     Route: 040
     Dates: start: 20130307, end: 20130422
  2. FLUOROURACILE TEVA [Suspect]
     Dosage: 1050 MG, CYCLICAL
     Route: 041
     Dates: start: 20130307, end: 20130422
  3. OXALIPLATINO TEVA [Suspect]
     Indication: RECTAL CANCER
     Dosage: 148.8 MG, CYCLICAL
     Route: 042
     Dates: start: 20130307, end: 20130422
  4. SOLDESAM [Concomitant]
     Dosage: 8 MILLIGRAM DAILY;
     Route: 042
  5. RANIDIL [Concomitant]
     Dosage: 50 MILLIGRAM DAILY;
     Route: 042
  6. LEVOFOLENE [Concomitant]
     Dosage: 175 MILLIGRAM DAILY;
     Route: 042
  7. ONDANSETRONE HIKMA [Concomitant]
     Dosage: 8 MILLIGRAM DAILY;
     Route: 042

REACTIONS (8)
  - Nausea [Unknown]
  - Vomiting [Unknown]
  - Stomatitis [Unknown]
  - Conjunctivitis [Unknown]
  - Asthenia [Unknown]
  - Chest pain [Unknown]
  - Abdominal pain [Unknown]
  - Formication [Unknown]
